FAERS Safety Report 8112504-9 (Version None)
Quarter: 2012Q1

REPORT INFORMATION
  Report Type: 
  Country: None (occurrence: None)
  Receive Date: 20120203
  Receipt Date: 20120124
  Transmission Date: 20120608
  Serious: Yes (Other)
  Sender: FDA-Public Use
  Company Number: CA-JNJFOC-20120200339

PATIENT
  Sex: Female

DRUGS (6)
  1. MORPHINE [Concomitant]
     Route: 065
  2. KETOROLAC TROMETHAMINE [Concomitant]
     Route: 065
  3. SYNTHROID [Concomitant]
     Route: 065
  4. REMICADE [Suspect]
     Indication: PSORIATIC ARTHROPATHY
     Route: 042
     Dates: start: 20110527
  5. GABAPENTIN [Concomitant]
     Route: 065
  6. REMICADE [Suspect]
     Route: 042
     Dates: start: 20111101

REACTIONS (3)
  - THYROID CANCER [None]
  - PSORIATIC ARTHROPATHY [None]
  - THYROID NEOPLASM [None]
